FAERS Safety Report 24091049 (Version 2)
Quarter: 2024Q3

REPORT INFORMATION
  Report Type: Report from Study
  Country: US (occurrence: US)
  Receive Date: 20240715
  Receipt Date: 20240724
  Transmission Date: 20241017
  Serious: Yes (Hospitalization)
  Sender: NOVARTIS
  Company Number: US-002147023-NVSC2024US000812

PATIENT
  Age: 52 Year
  Sex: Female

DRUGS (1)
  1. KESIMPTA [Suspect]
     Active Substance: OFATUMUMAB
     Indication: Multiple sclerosis
     Dosage: 20 MG, QMO
     Route: 058

REACTIONS (6)
  - Nephrolithiasis [Unknown]
  - Decreased immune responsiveness [Unknown]
  - Device malfunction [Unknown]
  - Accidental exposure to product [Unknown]
  - Device defective [Unknown]
  - Illness [Unknown]

NARRATIVE: CASE EVENT DATE: 20240202
